FAERS Safety Report 10835158 (Version 3)
Quarter: 2015Q3

REPORT INFORMATION
  Report Type: Spontaneous
  Country: PK (occurrence: PK)
  Receive Date: 20150219
  Receipt Date: 20150806
  Transmission Date: 20151125
  Serious: Yes (Hospitalization, Other)
  Sender: FDA-Public Use
  Company Number: PK-GILEAD-2015-0137535

PATIENT
  Age: 50 Year
  Sex: Female
  Weight: 50 kg

DRUGS (3)
  1. THYROXINE [Concomitant]
     Active Substance: LEVOTHYROXINE
     Dosage: 1000 UG, QD
  2. XOLOX                              /00816701/ [Suspect]
     Active Substance: RIBAVIRIN
     Indication: HEPATITIS C
     Dosage: 1000 MG, QD
     Route: 048
     Dates: start: 20141111
  3. SOVALDI [Suspect]
     Active Substance: SOFOSBUVIR
     Indication: HEPATITIS C
     Dosage: 400 MG, QD
     Route: 048
     Dates: start: 20141111

REACTIONS (7)
  - Neutropenia [Unknown]
  - Haematemesis [Unknown]
  - Loss of consciousness [Unknown]
  - Cough [Unknown]
  - Fatigue [Unknown]
  - Haemoglobin decreased [Unknown]
  - Depression [Unknown]

NARRATIVE: CASE EVENT DATE: 20150123
